FAERS Safety Report 4795307-2 (Version None)
Quarter: 2005Q4

REPORT INFORMATION
  Report Type: 
  Country: None (occurrence: None)
  Receive Date: 20051012
  Receipt Date: 20051010
  Transmission Date: 20060501
  Serious: Yes (Other)
  Sender: FDA-Public Use
  Company Number: US-GLAXOSMITHKLINE-A0577690A

PATIENT
  Age: 63 Year
  Sex: Female

DRUGS (13)
  1. ESKALITH [Suspect]
     Dosage: 450MG TWICE PER DAY
     Route: 048
     Dates: start: 20041221, end: 20050121
  2. LOTREL [Concomitant]
  3. LIPITOR [Concomitant]
  4. XANAX [Concomitant]
  5. AMBIEN [Concomitant]
  6. VICODIN [Concomitant]
  7. SOMA [Concomitant]
  8. SOMA [Concomitant]
  9. GLUCOVANCE [Concomitant]
  10. SYNTHROID [Concomitant]
  11. NEURONTIN [Concomitant]
  12. EFFEXOR [Concomitant]
  13. LAMICTAL [Concomitant]

REACTIONS (3)
  - ANXIETY [None]
  - FEAR [None]
  - MANIA [None]
